FAERS Safety Report 9128606 (Version 2)
Quarter: 2013Q1

REPORT INFORMATION
  Report Type: Spontaneous
  Country: FR (occurrence: FR)
  Receive Date: 20130228
  Receipt Date: 20130311
  Transmission Date: 20140127
  Serious: Yes (Other)
  Sender: FDA-Public Use
  Company Number: FR-JNJFOC-20130210066

PATIENT
  Age: 85 Year
  Sex: Male

DRUGS (12)
  1. DUROGESIC [Suspect]
     Indication: PRODUCT USED FOR UNKNOWN INDICATION
     Route: 062
     Dates: start: 20121018, end: 20121122
  2. LYRICA [Suspect]
     Indication: PRODUCT USED FOR UNKNOWN INDICATION
     Route: 048
     Dates: end: 20121115
  3. CIRCADIN [Interacting]
     Indication: SLEEP DISORDER
     Route: 048
     Dates: start: 20121109, end: 20121115
  4. LEXOMIL [Interacting]
     Indication: PRODUCT USED FOR UNKNOWN INDICATION
     Route: 048
     Dates: end: 20121115
  5. NOCTAMIDE [Interacting]
     Indication: PRODUCT USED FOR UNKNOWN INDICATION
     Route: 048
  6. DAFALGAN [Concomitant]
     Route: 048
  7. INSPRA [Concomitant]
     Route: 048
     Dates: start: 201208, end: 20121115
  8. TRIATEC [Concomitant]
     Route: 048
  9. LASILIX [Concomitant]
     Route: 048
  10. MODOPAR [Concomitant]
     Dosage: 50 MG/12.5 MG
     Route: 048
  11. CARDENSIEL [Concomitant]
     Route: 048
  12. DIFFU-K [Concomitant]
     Route: 048

REACTIONS (4)
  - Dyspnoea [Recovered/Resolved]
  - Dysphagia [Recovered/Resolved]
  - General physical health deterioration [Recovered/Resolved]
  - Drug interaction [Recovered/Resolved]
